FAERS Safety Report 4833281-0 (Version None)
Quarter: 2005Q4

REPORT INFORMATION
  Report Type: 
  Country: None (occurrence: None)
  Receive Date: 20051117
  Receipt Date: 20051104
  Transmission Date: 20060501
  Serious: Yes (Other)
  Sender: FDA-Public Use
  Company Number: 216279

PATIENT
  Sex: Male

DRUGS (1)
  1. RAPTIVA [Suspect]
     Dates: start: 20050211, end: 20050429

REACTIONS (2)
  - HAEMOGLOBIN DECREASED [None]
  - LYMPHOCYTOSIS [None]
